FAERS Safety Report 4414432-9 (Version None)
Quarter: 2004Q3

REPORT INFORMATION
  Report Type: 
  Country: None (occurrence: None)
  Receive Date: 20040729
  Receipt Date: 20040716
  Transmission Date: 20050211
  Serious: Yes (Hospitalization)
  Sender: FDA-Public Use
  Company Number: S04-BRA-03329-01

PATIENT
  Age: 83 Year
  Sex: Female

DRUGS (7)
  1. LEXAPRO [Suspect]
     Indication: DEPRESSION
     Dosage: 10 MG QD PO
     Route: 048
     Dates: start: 20040705, end: 20040709
  2. LEVOTHYROXINE SODIUM [Concomitant]
  3. INSULIN [Concomitant]
  4. AMLODIPINE [Concomitant]
  5. CAPTOPRIL [Concomitant]
  6. PHENYTOIN [Concomitant]
  7. PRAVASTATIN [Concomitant]

REACTIONS (3)
  - NON-CARDIOGENIC PULMONARY OEDEMA [None]
  - THERAPY NON-RESPONDER [None]
  - URINARY TRACT INFECTION [None]
